FAERS Safety Report 14652837 (Version 1)
Quarter: 2018Q1

REPORT INFORMATION
  Report Type: Spontaneous
  Country: US (occurrence: US)
  Receive Date: 20180316
  Receipt Date: 20180316
  Transmission Date: 20180509
  Serious: No
  Sender: FDA-Public Use
  Company Number: None

PATIENT

DRUGS (3)
  1. KLONOPIN [Suspect]
     Active Substance: CLONAZEPAM
     Indication: GENERALISED ANXIETY DISORDER
     Dosage: PT HAS BEEN ON SAME DOSE LAST  4 YEARS
     Dates: start: 201402
  2. KLONOPIN [Suspect]
     Active Substance: CLONAZEPAM
     Indication: POST-TRAUMATIC STRESS DISORDER
     Dosage: PT HAS BEEN ON SAME DOSE LAST  4 YEARS
     Dates: start: 201402
  3. KLONOPIN [Suspect]
     Active Substance: CLONAZEPAM
     Indication: BIPOLAR DISORDER
     Dosage: PT HAS BEEN ON SAME DOSE LAST  4 YEARS
     Dates: start: 201402

REACTIONS (2)
  - Product substitution issue [None]
  - Drug ineffective [None]
